FAERS Safety Report 24838398 (Version 1)
Quarter: 2025Q1

REPORT INFORMATION
  Report Type: Spontaneous
  Country: US (occurrence: US)
  Receive Date: 20250113
  Receipt Date: 20250113
  Transmission Date: 20250409
  Serious: No
  Sender: FOUNDATION CONSUMER BRANDS
  Company Number: US-FOUNDATIONCONSUMERHC-2024-US-023016

PATIENT
  Age: 78 Year
  Sex: Female
  Weight: 47.63 kg

DRUGS (7)
  1. ALAVERT ALLERGY [Suspect]
     Active Substance: LORATADINE
     Indication: Rash
     Route: 048
     Dates: start: 20240416, end: 20240417
  2. WARFARIN [Concomitant]
     Active Substance: WARFARIN
  3. SYNTHROID [Concomitant]
     Active Substance: LEVOTHYROXINE SODIUM
  4. KEPPRA [Concomitant]
     Active Substance: LEVETIRACETAM
  5. LUTEIN [Concomitant]
     Active Substance: LUTEIN
  6. PREDNISONE [Concomitant]
     Active Substance: PREDNISONE
  7. CALCIUM [Concomitant]
     Active Substance: CALCIUM

REACTIONS (4)
  - Erythema [Not Recovered/Not Resolved]
  - Skin warm [Not Recovered/Not Resolved]
  - Intentional product misuse [Recovered/Resolved]
  - Product use in unapproved indication [Recovered/Resolved]

NARRATIVE: CASE EVENT DATE: 20240416
